FAERS Safety Report 9385819 (Version 1)
Quarter: 2013Q3

REPORT INFORMATION
  Report Type: Spontaneous
  Country: US (occurrence: US)
  Receive Date: 20130705
  Receipt Date: 20130705
  Transmission Date: 20140515
  Serious: Yes (Hospitalization)
  Sender: FDA-Public Use
  Company Number: US-B.I. PHARMACEUTICALS,INC./RIDGEFIELD-2013-BI-18644BP

PATIENT
  Age: 61 Year
  Sex: Male
  Weight: 93 kg

DRUGS (10)
  1. SPIRIVA [Suspect]
     Indication: CHRONIC OBSTRUCTIVE PULMONARY DISEASE
     Dosage: 18 MCG
     Route: 055
     Dates: start: 2008
  2. LOSARTAN [Concomitant]
     Indication: HYPERTENSION
     Dosage: 50 MG
     Route: 048
  3. CLOPIDOGREL [Concomitant]
     Dosage: 75 MG
     Route: 048
  4. METOPROLOL [Concomitant]
     Indication: HYPERTENSION
     Dosage: 100 MG
     Route: 048
  5. ASPIRIN [Concomitant]
     Dosage: 81 MG
     Route: 048
  6. CO Q10 [Concomitant]
     Dosage: 100 MG
     Route: 048
  7. CALCIUM +D3 [Concomitant]
     Dosage: 1200 MG
     Route: 048
  8. SENIOR MULTIVITAMIN [Concomitant]
     Route: 048
  9. ATORVASTATIN [Concomitant]
     Indication: BLOOD CHOLESTEROL INCREASED
     Dosage: 80 MG
     Route: 048
  10. FISH OIL [Concomitant]
     Dosage: 2000 MG
     Route: 048

REACTIONS (3)
  - Dyspnoea [Recovered/Resolved]
  - Joint injury [Not Recovered/Not Resolved]
  - Haemarthrosis [Not Recovered/Not Resolved]
